FAERS Safety Report 21848301 (Version 1)
Quarter: 2023Q1

REPORT INFORMATION
  Report Type: Spontaneous
  Country: US (occurrence: None)
  Receive Date: 20230110
  Receipt Date: 20230110
  Transmission Date: 20230418
  Serious: Yes (Other)
  Sender: FDA-Public Use
  Company Number: None

PATIENT
  Sex: Male
  Weight: 68.85 kg

DRUGS (1)
  1. GABAPENTIN [Suspect]
     Active Substance: GABAPENTIN
     Indication: Sciatica
     Dosage: FREQUENCY : AT BEDTIME;?
     Route: 048
     Dates: start: 20220501, end: 20220705

REACTIONS (2)
  - Low density lipoprotein increased [None]
  - Blood cholesterol increased [None]
